FAERS Safety Report 7408779-1 (Version None)
Quarter: 2011Q2

REPORT INFORMATION
  Report Type: 
  Country: None (occurrence: None)
  Receive Date: 20110412
  Receipt Date: 20110407
  Transmission Date: 20111010
  Serious: Yes (Death, Hospitalization)
  Sender: FDA-Public Use
  Company Number: PHHY2011VE29489

PATIENT
  Sex: Male

DRUGS (3)
  1. DIABINESE [Concomitant]
     Indication: DIABETES MELLITUS
     Dosage: 250 MG, PER DAY
  2. DIOVAN HCT [Suspect]
     Indication: HYPERTENSION
     Dosage: 1 DF, QD, (80/12.5 MG)
     Route: 048
     Dates: start: 20030101
  3. AMLODIPINE [Concomitant]
     Indication: HYPERTENSION
     Dosage: 10 MG, PER DAY

REACTIONS (2)
  - HYPOGLYCAEMIA [None]
  - CEREBROVASCULAR ACCIDENT [None]
